FAERS Safety Report 20062425 (Version 1)
Quarter: 2021Q4

REPORT INFORMATION
  Report Type: Spontaneous
  Country: US (occurrence: None)
  Receive Date: 20211111
  Receipt Date: 20211111
  Transmission Date: 20220303
  Serious: Yes (Hospitalization)
  Sender: FDA-Public Use
  Company Number: None

PATIENT
  Age: 76 Year
  Sex: Female
  Weight: 52.2 kg

DRUGS (13)
  1. CAPECITABINE [Suspect]
     Active Substance: CAPECITABINE
     Indication: Rectal cancer
     Dosage: OTHER FREQUENCY : BID X 14 DAYS/21;?
     Route: 048
     Dates: start: 20210923
  2. CAPECITABINE [Suspect]
     Active Substance: CAPECITABINE
     Indication: Rectal cancer
     Dosage: OTHER FREQUENCY : BID14ON7OFF;?
     Route: 048
     Dates: start: 20210924
  3. ALBUTEROL [Concomitant]
     Active Substance: ALBUTEROL
  4. ASPIRIN [Concomitant]
     Active Substance: ASPIRIN
  5. BETAMETHASONE\CLOTRIMAZOLE [Concomitant]
     Active Substance: BETAMETHASONE\CLOTRIMAZOLE
  6. FLONASE [Concomitant]
     Active Substance: FLUTICASONE PROPIONATE
  7. LASIX [Concomitant]
     Active Substance: FUROSEMIDE
  8. MECLIZINE [Concomitant]
     Active Substance: MECLIZINE HYDROCHLORIDE
  9. megesterol [Concomitant]
  10. QUETIAPINE [Concomitant]
     Active Substance: QUETIAPINE
  11. TRAMADOL [Concomitant]
     Active Substance: TRAMADOL
  12. HYDROCHLOROTHIAZIDE\TRIAMTERENE [Concomitant]
     Active Substance: HYDROCHLOROTHIAZIDE\TRIAMTERENE
  13. ZOFRAN [Concomitant]
     Active Substance: ONDANSETRON HYDROCHLORIDE

REACTIONS (1)
  - Stoma site extravasation [None]

NARRATIVE: CASE EVENT DATE: 20211111
